FAERS Safety Report 17631417 (Version 1)
Quarter: 2020Q2

REPORT INFORMATION
  Report Type: Report from Study
  Country: FR (occurrence: FR)
  Receive Date: 20200406
  Receipt Date: 20200406
  Transmission Date: 20200713
  Serious: Yes (Death)
  Sender: FDA-Public Use
  Company Number: FR-PFIZER INC-2020138129

PATIENT

DRUGS (4)
  1. FARMORUBICINE [Suspect]
     Active Substance: EPIRUBICIN HYDROCHLORIDE
     Indication: OVARIAN EPITHELIAL CANCER
     Dosage: 50 MG/M2, DAY 1, EVERY 3 WEEKS
     Route: 040
  2. ENDOXAN [Suspect]
     Active Substance: CYCLOPHOSPHAMIDE
     Indication: OVARIAN EPITHELIAL CANCER
     Dosage: 1800 MG/M2, DAY1, EVERY 3 WEEKS
     Route: 041
  3. NEUPOGEN [Suspect]
     Active Substance: FILGRASTIM
     Dosage: 5 UG/KG, Q3WK (PER DAY FROM DAY 2 TO DAY 11)
  4. CISPLATYL [Suspect]
     Active Substance: CISPLATIN
     Indication: OVARIAN EPITHELIAL CANCER
     Dosage: 75 MG/M2, DAY 1, EVERY 3 WEEKS
     Route: 042

REACTIONS (1)
  - Toxicity to various agents [Fatal]
